FAERS Safety Report 7369910-X (Version None)
Quarter: 2011Q1

REPORT INFORMATION
  Report Type: 
  Country: None (occurrence: None)
  Receive Date: 20110323
  Receipt Date: 20110314
  Transmission Date: 20110831
  Serious: Yes (Hospitalization)
  Sender: FDA-Public Use
  Company Number: JP-ASTRAZENECA-2011SE15245

PATIENT
  Age: 76 Year
  Sex: Male
  Weight: 53 kg

DRUGS (11)
  1. BLOPRESS [Suspect]
     Indication: CARDIAC FAILURE
     Route: 048
     Dates: start: 20100512
  2. ASPIRIN [Suspect]
     Indication: THROMBOSIS PROPHYLAXIS
     Route: 048
     Dates: start: 20100527
  3. ARTIST [Suspect]
     Indication: CARDIAC FAILURE
     Route: 048
     Dates: start: 20100528, end: 20110121
  4. ALESION [Suspect]
     Indication: PRURITUS
     Route: 048
     Dates: start: 20100723
  5. LASIX [Suspect]
     Indication: CARDIAC FAILURE
     Route: 048
     Dates: start: 20100611
  6. PLAVIX [Suspect]
     Indication: THROMBOSIS PROPHYLAXIS
     Route: 048
     Dates: start: 20100527
  7. EPLERENONE; PLACEBO [Suspect]
     Indication: CARDIAC FAILURE CHRONIC
     Dosage: DAILY
     Route: 048
     Dates: start: 20100917, end: 20101015
  8. LANSOPRAZOLE [Suspect]
     Indication: GASTRITIS PROPHYLAXIS
     Route: 048
     Dates: start: 20100512
  9. CRESTOR [Suspect]
     Indication: HYPERLIPIDAEMIA
     Route: 048
     Dates: start: 20100512
  10. ARTIST [Suspect]
     Route: 048
     Dates: start: 20110122
  11. EPLERENONE; PLACEBO [Suspect]
     Route: 065
     Dates: start: 20101016

REACTIONS (1)
  - ANGINA PECTORIS [None]
